FAERS Safety Report 23210863 (Version 1)
Quarter: 2023Q4

REPORT INFORMATION
  Report Type: Spontaneous
  Country: CN (occurrence: CN)
  Receive Date: 20231121
  Receipt Date: 20231121
  Transmission Date: 20240110
  Serious: Yes (Other)
  Sender: FDA-Public Use
  Company Number: CN-PFIZER INC-PV202300187256

PATIENT
  Age: 60 Year
  Sex: Female
  Weight: 76 kg

DRUGS (1)
  1. LINEZOLID [Suspect]
     Active Substance: LINEZOLID
     Indication: Skin ulcer
     Dosage: 0.6 G, 2X/DAY
     Route: 041
     Dates: start: 20231031, end: 20231102

REACTIONS (7)
  - Pyrexia [Recovered/Resolved]
  - Gastrointestinal disorder [Recovered/Resolved]
  - Myalgia [Recovered/Resolved]
  - Arthralgia [Recovering/Resolving]
  - Abdominal discomfort [Recovered/Resolved]
  - Vomiting [Recovered/Resolved]
  - Nausea [Recovered/Resolved]

NARRATIVE: CASE EVENT DATE: 20231102
